FAERS Safety Report 12507491 (Version 1)
Quarter: 2016Q2

REPORT INFORMATION
  Report Type: Spontaneous
  Country: US (occurrence: None)
  Receive Date: 20160628
  Receipt Date: 20160628
  Transmission Date: 20160815
  Serious: Yes (Hospitalization)
  Sender: FDA-Public Use
  Company Number: None

PATIENT
  Age: 15 Year
  Sex: Male
  Weight: 60 kg

DRUGS (1)
  1. CLOZAPINE. [Suspect]
     Active Substance: CLOZAPINE

REACTIONS (6)
  - Pyrexia [None]
  - Abdominal pain upper [None]
  - Decreased appetite [None]
  - Diarrhoea [None]
  - Vomiting [None]
  - Headache [None]

NARRATIVE: CASE EVENT DATE: 20160622
